FAERS Safety Report 16526591 (Version 1)
Quarter: 2019Q3

REPORT INFORMATION
  Report Type: Spontaneous
  Country: US (occurrence: US)
  Receive Date: 20190703
  Receipt Date: 20190703
  Transmission Date: 20191004
  Serious: No
  Sender: FDA-Public Use
  Company Number: US-BAUSCH-BL-2019-018666

PATIENT
  Age: 54 Year
  Sex: Male
  Weight: 111.68 kg

DRUGS (5)
  1. XIFAXAN [Suspect]
     Active Substance: RIFAXIMIN
     Indication: IRRITABLE BOWEL SYNDROME
     Route: 048
     Dates: start: 201902, end: 2019
  2. XIFAXAN [Suspect]
     Active Substance: RIFAXIMIN
     Route: 048
     Dates: start: 2019, end: 2019
  3. COUMADIN [Concomitant]
     Active Substance: WARFARIN SODIUM
     Indication: PRODUCT USED FOR UNKNOWN INDICATION
     Route: 048
  4. XIFAXAN [Suspect]
     Active Substance: RIFAXIMIN
     Dosage: ONLY TOOK WHEN PATIENT HAD SYMPTOMS AND SOMETIMES TOOK ONE TABLET/DAY WHEN NEEDED
     Route: 048
     Dates: start: 2019
  5. XIFAXAN [Suspect]
     Active Substance: RIFAXIMIN
     Dosage: RESTARTED ANOTHER 2-WEEK COURSE AFTER 1 MONTH
     Route: 048
     Dates: start: 2019, end: 2019

REACTIONS (3)
  - Irritable bowel syndrome [Unknown]
  - Symptom recurrence [Unknown]
  - Product use issue [Unknown]

NARRATIVE: CASE EVENT DATE: 2019
